FAERS Safety Report 10167053 (Version 1)
Quarter: 2014Q2

REPORT INFORMATION
  Report Type: Spontaneous
  Country: US (occurrence: None)
  Receive Date: 20140508
  Receipt Date: 20140508
  Transmission Date: 20141212
  Serious: Yes (Hospitalization)
  Sender: FDA-Public Use
  Company Number: LIT-14-0021-W

PATIENT
  Age: 84 Year
  Sex: Male

DRUGS (15)
  1. BUPROPRION HCL [Suspect]
     Indication: DEPRESSION
  2. BUPROPRION HCL [Suspect]
     Indication: ANXIETY
  3. ALLOPURINOL [Concomitant]
  4. ASPIRIN [Concomitant]
  5. ATENOLOL [Concomitant]
  6. DONEPEZIL [Concomitant]
  7. GABAPENTIN [Concomitant]
  8. HCTZ [Concomitant]
  9. LISINOPRIL [Concomitant]
  10. MIRTAZAPINE [Concomitant]
  11. OMEPRAZOLE [Concomitant]
  12. PRAVASTATIN [Concomitant]
  13. ACETAMINOPHEN [Concomitant]
  14. NITROGLYCERINE [Concomitant]
  15. LIDOCAINE OINTMENT [Concomitant]

REACTIONS (9)
  - Psychotic disorder [None]
  - Hallucination [None]
  - Myoclonus [None]
  - Tremor [None]
  - Ataxia [None]
  - Agitation [None]
  - Vertigo [None]
  - Asthenia [None]
  - Dysarthria [None]
